FAERS Safety Report 16978089 (Version 1)
Quarter: 2019Q4

REPORT INFORMATION
  Report Type: Spontaneous
  Country: US (occurrence: US)
  Receive Date: 20191031
  Receipt Date: 20191031
  Transmission Date: 20200122
  Serious: No
  Sender: FDA-Public Use
  Company Number: US-009507513-1910USA016196

PATIENT
  Age: 29 Year
  Sex: Female

DRUGS (1)
  1. GANIRELIX ACETATE INJECTION [Suspect]
     Active Substance: GANIRELIX ACETATE
     Indication: INFERTILITY FEMALE
     Dosage: STRENGTH:250 MCG/.5M, 250 MICROGRAM, QD
     Route: 058
     Dates: start: 20191016

REACTIONS (2)
  - Injection site irritation [Unknown]
  - Injection site erythema [Unknown]

NARRATIVE: CASE EVENT DATE: 201910
